FAERS Safety Report 7773016-5 (Version None)
Quarter: 2011Q3

REPORT INFORMATION
  Report Type: 
  Country: None (occurrence: None)
  Receive Date: 20110922
  Receipt Date: 20110504
  Transmission Date: 20111222
  Serious: No
  Sender: FDA-Public Use
  Company Number: US-ASTRAZENECA-2011SE26279

PATIENT
  Age: 46 Year
  Sex: Female
  Weight: 74.8 kg

DRUGS (3)
  1. BLOOD PRESSURE MEDICATION [Concomitant]
  2. SEROQUEL XR [Suspect]
     Indication: BIPOLAR I DISORDER
     Route: 048
     Dates: start: 20080101, end: 20110401
  3. NEXIUM [Concomitant]

REACTIONS (3)
  - DRUG DOSE OMISSION [None]
  - TACHYPHRENIA [None]
  - INSOMNIA [None]
